FAERS Safety Report 9297824 (Version 1)
Quarter: 2013Q2

REPORT INFORMATION
  Report Type: Spontaneous
  Country: US (occurrence: US)
  Receive Date: 20130520
  Receipt Date: 20130520
  Transmission Date: 20140414
  Serious: Yes (Hospitalization)
  Sender: FDA-Public Use
  Company Number: US-BAYER-2013-060633

PATIENT
  Age: 33 Year
  Sex: Female
  Weight: 47.62 kg

DRUGS (12)
  1. YAZ [Suspect]
  2. GIANVI [Suspect]
  3. OCELLA [Suspect]
  4. METHOCARBAMOL [Concomitant]
     Dosage: 500 MG, UNK
     Dates: start: 20111220
  5. HYDROCODONE/ACETAMINOPHEN [Concomitant]
     Dosage: 5-500 MG
  6. PREDNISONE [Concomitant]
     Dosage: 20 MG, UNK
  7. PRIMIDONE [Concomitant]
     Dosage: 50 MG, UNK
  8. ZOLPIDEM [Concomitant]
     Dosage: 10 MG, UNK
     Route: 048
  9. KLONOPIN [Concomitant]
     Dosage: 0.5 MG, UNK
     Route: 048
  10. TRAZODONE [Concomitant]
     Dosage: 200 MG, UNK
     Route: 048
  11. PAXIL [Concomitant]
     Route: 048
  12. BENTYL [Concomitant]

REACTIONS (1)
  - Pulmonary embolism [None]
